FAERS Safety Report 17154976 (Version 1)
Quarter: 2019Q4

REPORT INFORMATION
  Report Type: Spontaneous
  Country: US (occurrence: US)
  Receive Date: 20191214
  Receipt Date: 20191214
  Transmission Date: 20200122
  Serious: Yes (Other)
  Sender: FDA-Public Use
  Company Number: NVSC2019US068242

PATIENT
  Age: 43 Year
  Sex: Male

DRUGS (3)
  1. DABRAFENIB [Suspect]
     Active Substance: DABRAFENIB
     Indication: MELANOMA RECURRENT
     Dosage: UNK
     Route: 065
  2. VEMURAFENIB. [Suspect]
     Active Substance: VEMURAFENIB
     Indication: MELANOMA RECURRENT
     Dosage: UNK, UNKNOWN
     Route: 065
  3. TRAMETINIB [Suspect]
     Active Substance: TRAMETINIB
     Indication: MELANOMA RECURRENT
     Dosage: UNK UNK
     Route: 065

REACTIONS (2)
  - Malignant neoplasm progression [Unknown]
  - Malignant melanoma [Unknown]
